FAERS Safety Report 13059472 (Version 1)
Quarter: 2016Q4

REPORT INFORMATION
  Report Type: Spontaneous
  Country: BE (occurrence: BE)
  Receive Date: 20161223
  Receipt Date: 20161223
  Transmission Date: 20170207
  Serious: Yes (Other)
  Sender: FDA-Public Use
  Company Number: BE-SHIRE-BE201620004

PATIENT
  Sex: Female

DRUGS (3)
  1. XAGRID [Suspect]
     Active Substance: ANAGRELIDE HYDROCHLORIDE
     Indication: THROMBOCYTOSIS
     Dosage: 0.5 MG ,4X/DAY:QID
     Route: 048
  2. XAGRID [Suspect]
     Active Substance: ANAGRELIDE HYDROCHLORIDE
     Dosage: 1.5 MG (3 CAPSULES), UNKNOWN
     Route: 048
  3. XAGRID [Suspect]
     Active Substance: ANAGRELIDE HYDROCHLORIDE
     Dosage: 1.0 MG (2 CAPSULES), UNKNOWN
     Route: 048

REACTIONS (7)
  - Chronic obstructive pulmonary disease [Unknown]
  - Lung infection [Unknown]
  - Night sweats [Unknown]
  - Diarrhoea [Unknown]
  - Palpitations [Unknown]
  - Cardiomegaly [Unknown]
  - Abdominal distension [Unknown]
